FAERS Safety Report 7054455-7 (Version None)
Quarter: 2010Q4

REPORT INFORMATION
  Report Type: 
  Country: None (occurrence: None)
  Receive Date: 20101020
  Receipt Date: 20101011
  Transmission Date: 20110411
  Serious: Yes (Hospitalization)
  Sender: FDA-Public Use
  Company Number: MX-ELI_LILLY_AND_COMPANY-MX201010002851

PATIENT
  Age: 9 Year
  Sex: Female

DRUGS (1)
  1. HUMULIN R [Suspect]
     Indication: TYPE 1 DIABETES MELLITUS

REACTIONS (2)
  - DIABETIC COMA [None]
  - DRUG INEFFECTIVE [None]
